FAERS Safety Report 5698821-0 (Version None)
Quarter: 2008Q2

REPORT INFORMATION
  Report Type: 
  Country: None (occurrence: None)
  Receive Date: 20080404
  Receipt Date: 20080327
  Transmission Date: 20081010
  Serious: Yes (Death)
  Sender: FDA-Public Use
  Company Number: 2008US000677

PATIENT
  Age: 44 Year
  Sex: Male

DRUGS (3)
  1. PROGRAF [Suspect]
     Indication: RENAL TRANSPLANT
     Dosage: 1 MG, ORAL
     Route: 048
  2. CELLCEPT [Concomitant]
  3. PREDNISOLONE [Concomitant]

REACTIONS (1)
  - DEATH [None]
